FAERS Safety Report 16732007 (Version 3)
Quarter: 2019Q3

REPORT INFORMATION
  Report Type: Spontaneous
  Country: FR (occurrence: FR)
  Receive Date: 20190822
  Receipt Date: 20190902
  Transmission Date: 20191005
  Serious: Yes (Other)
  Sender: FDA-Public Use
  Company Number: FR-PFIZER INC-2019358300

PATIENT
  Age: 28 Year
  Sex: Female
  Weight: 54 kg

DRUGS (5)
  1. CODOLIPRANE [Suspect]
     Active Substance: ACETAMINOPHEN\CODEINE PHOSPHATE
     Dosage: 13 DF, UNK
     Route: 048
     Dates: start: 20190727, end: 20190727
  2. DECONTRACTYL [MEPHENESIN] [Suspect]
     Active Substance: MEPHENESIN
     Dosage: 3500 MG, UNK (7X500MG)
     Route: 048
     Dates: start: 20190727, end: 20190727
  3. BILASKA [Suspect]
     Active Substance: BILASTINE
     Dosage: 400 MG, UNK
     Route: 048
     Dates: start: 20190727, end: 20190727
  4. ALPRAZOLAM. [Suspect]
     Active Substance: ALPRAZOLAM
     Dosage: 12.5 G, UNK
     Route: 048
     Dates: start: 20190727, end: 20190727
  5. DAFALGAN CODEINE [Suspect]
     Active Substance: ACETAMINOPHEN\CODEINE PHOSPHATE
     Dosage: 2 DF, UNK
     Route: 048
     Dates: start: 20190727, end: 20190727

REACTIONS (3)
  - Intentional overdose [Recovered/Resolved]
  - Poisoning deliberate [Recovered/Resolved]
  - Somnolence [Recovered/Resolved]

NARRATIVE: CASE EVENT DATE: 20190727
